FAERS Safety Report 11912767 (Version 1)
Quarter: 2016Q1

REPORT INFORMATION
  Report Type: Spontaneous
  Country: GB (occurrence: GB)
  Receive Date: 20160113
  Receipt Date: 20160113
  Transmission Date: 20160526
  Serious: Yes (Death, Other)
  Sender: FDA-Public Use
  Company Number: GB-HETERO LABS LTD-1046444

PATIENT
  Sex: Female

DRUGS (6)
  1. VALACYCLOVIR [Suspect]
     Active Substance: VALACYCLOVIR HYDROCHLORIDE
     Indication: HERPES VIRUS INFECTION
     Route: 064
     Dates: start: 20140918, end: 20140922
  2. DARUNAVIR [Concomitant]
     Active Substance: DARUNAVIR
     Route: 064
  3. RITONAVIR. [Concomitant]
     Active Substance: RITONAVIR
     Route: 064
  4. CYCLIZINE [Concomitant]
     Active Substance: CYCLIZINE
     Route: 064
     Dates: start: 20140904, end: 20141030
  5. MIRTAZAPINE. [Concomitant]
     Active Substance: MIRTAZAPINE
  6. TRUVADA [Concomitant]
     Active Substance: EMTRICITABINE\TENOFOVIR DISOPROXIL FUMARATE
     Route: 064

REACTIONS (4)
  - Skull malformation [Fatal]
  - Cerebral ventricle dilatation [Fatal]
  - Spina bifida [Fatal]
  - Foetal exposure during pregnancy [Unknown]
